FAERS Safety Report 6383550-0 (Version None)
Quarter: 2009Q4

REPORT INFORMATION
  Report Type: 
  Country: None (occurrence: None)
  Receive Date: 20091001
  Receipt Date: 20090921
  Transmission Date: 20100525
  Serious: Yes (Hospitalization)
  Sender: FDA-Public Use
  Company Number: FR-ROCHE-657600

PATIENT
  Sex: Female

DRUGS (5)
  1. CELLCEPT [Suspect]
     Indication: DRUG USE FOR UNKNOWN INDICATION
     Route: 048
     Dates: start: 20090513, end: 20090608
  2. LOVENOX [Concomitant]
     Dates: start: 20090428, end: 20090608
  3. SOLU-MEDROL [Concomitant]
     Dates: start: 20090414, end: 20090419
  4. SOLU-MEDROL [Concomitant]
     Dosage: PATIENT RECEIVED METHYLPREDNISOLONE AT DOSAGE OF 3 GM IN 3 DAYS
  5. ZELITREX [Concomitant]
     Dates: start: 20090421, end: 20090526

REACTIONS (2)
  - CYTOLYTIC HEPATITIS [None]
  - DISEASE PROGRESSION [None]
